FAERS Safety Report 16474226 (Version 1)
Quarter: 2019Q3

REPORT INFORMATION
  Report Type: Spontaneous
  Country: US (occurrence: US)
  Receive Date: 20190624
  Receipt Date: 20190624
  Transmission Date: 20191004
  Serious: Yes (Other)
  Sender: FDA-Public Use
  Company Number: None

PATIENT
  Age: 60 Year
  Sex: Male
  Weight: 78.3 kg

DRUGS (8)
  1. VITAMIN D [Concomitant]
     Active Substance: VITAMIN D NOS
  2. XGEVA [Concomitant]
     Active Substance: DENOSUMAB
  3. ABIRATERONE ACETATE. [Suspect]
     Active Substance: ABIRATERONE ACETATE
     Indication: PROSTATE CANCER
     Route: 048
     Dates: start: 20190524
  4. MORPHINE [Concomitant]
     Active Substance: MORPHINE
  5. VITAMIN B50 COMPLEX [Concomitant]
     Active Substance: BIOTIN\CALCIUM PANTOTHENATE\CHOLINE BITARTRATE\CYANOCOBALAMIN\FOLIC ACID\INOSITOL\NIACINAMIDE\PYRIDOXINE\RIBOFLAVIN\THIAMINE
  6. LUPRON DEPOT [Concomitant]
     Active Substance: LEUPROLIDE ACETATE
  7. PREDNISONE. [Concomitant]
     Active Substance: PREDNISONE
  8. CALCIUM 600 [Concomitant]
     Active Substance: CALCIUM

REACTIONS (1)
  - Arthralgia [None]
